FAERS Safety Report 6023180-3 (Version None)
Quarter: 2008Q4

REPORT INFORMATION
  Report Type: 
  Country: None (occurrence: None)
  Receive Date: 20081230
  Receipt Date: 20081218
  Transmission Date: 20090506
  Serious: Yes (Other)
  Sender: FDA-Public Use
  Company Number: DE-AMGEN-US308039

PATIENT
  Sex: Male

DRUGS (4)
  1. ENBREL [Suspect]
     Indication: PSORIASIS
     Route: 058
     Dates: start: 20050421
  2. ENBREL [Suspect]
     Indication: PSORIATIC ARTHROPATHY
  3. LANTAREL [Concomitant]
     Indication: PSORIASIS
     Route: 058
     Dates: start: 19970101
  4. LANTAREL [Concomitant]
     Indication: PSORIATIC ARTHROPATHY

REACTIONS (1)
  - OROPHARYNGEAL NEOPLASM [None]
